FAERS Safety Report 14073139 (Version 3)
Quarter: 2018Q1

REPORT INFORMATION
  Report Type: Report from Study
  Country: US (occurrence: US)
  Receive Date: 20171011
  Receipt Date: 20180216
  Transmission Date: 20180508
  Serious: Yes (Other)
  Sender: FDA-Public Use
  Company Number: US-AMGEN-USASL2017152360

PATIENT
  Age: 76 Year
  Sex: Female

DRUGS (4)
  1. ENBREL [Suspect]
     Active Substance: ETANERCEPT
     Indication: ECZEMA
     Dosage: 50 MG, QWK
     Route: 065
     Dates: start: 201801
  2. BABY ASPIRIN [Concomitant]
     Active Substance: ASPIRIN
     Dosage: UNK
  3. ENBREL [Suspect]
     Active Substance: ETANERCEPT
     Indication: PSORIASIS
     Dosage: 50 MG, 2 TIMES/WK
     Route: 065
     Dates: start: 2017, end: 201801
  4. OTEZLA [Concomitant]
     Active Substance: APREMILAST
     Indication: ECZEMA
     Dosage: UNK

REACTIONS (6)
  - Meniscus injury [Unknown]
  - Therapy non-responder [Unknown]
  - Mobility decreased [Unknown]
  - Psoriasis [Unknown]
  - Posture abnormal [Unknown]
  - Off label use [Unknown]

NARRATIVE: CASE EVENT DATE: 2017
